FAERS Safety Report 23323822 (Version 1)
Quarter: 2023Q4

REPORT INFORMATION
  Report Type: Spontaneous
  Country: US (occurrence: None)
  Receive Date: 20231220
  Receipt Date: 20231220
  Transmission Date: 20240110
  Serious: Yes (Other)
  Sender: FDA-Public Use
  Company Number: US-ROCHE-3451712

PATIENT
  Sex: Male

DRUGS (9)
  1. RITUXAN [Suspect]
     Active Substance: RITUXIMAB
     Indication: Diffuse large B-cell lymphoma
     Dosage: PATIENT RECEIVED 6 INFUSIONS IN TOTAL
     Route: 041
     Dates: start: 20211109, end: 20220222
  2. OXALIPLATIN [Suspect]
     Active Substance: OXALIPLATIN
     Indication: Diffuse large B-cell lymphoma
     Dosage: RECEIVED 6 INFUSIONS IN TOTAL
     Route: 042
     Dates: start: 20211109, end: 20220222
  3. GEMCITABINE [Suspect]
     Active Substance: GEMCITABINE
     Indication: Diffuse large B-cell lymphoma
     Dosage: RECEIVED 6 INFUSIONS IN TOTAL
     Route: 042
     Dates: start: 20211109, end: 20220222
  4. CYCLOPHOSPHAMIDE [Concomitant]
     Active Substance: CYCLOPHOSPHAMIDE
  5. DOXORUBICIN [Concomitant]
     Active Substance: DOXORUBICIN
  6. VINCRISTINE [Concomitant]
     Active Substance: VINCRISTINE
  7. PREDNISONE [Concomitant]
     Active Substance: PREDNISONE
  8. AZACITIDINE [Concomitant]
     Active Substance: AZACITIDINE
  9. METOPROLOL [Concomitant]
     Active Substance: METOPROLOL

REACTIONS (1)
  - Infusion related reaction [Unknown]
